FAERS Safety Report 5041574-X (Version None)
Quarter: 2006Q2

REPORT INFORMATION
  Report Type: 
  Country: None (occurrence: None)
  Receive Date: 20060601
  Receipt Date: 20060328
  Transmission Date: 20061013
  Serious: No
  Sender: FDA-Public Use
  Company Number: 2006PV011110

PATIENT
  Age: 49 Year
  Sex: Female
  Weight: 102.0593 kg

DRUGS (13)
  1. BYETTA [Suspect]
     Indication: DIABETES MELLITUS NON-INSULIN-DEPENDENT
     Dosage: 5 MCG; BID; SC
     Route: 058
     Dates: start: 20060215, end: 20060219
  2. BYETTA [Suspect]
     Indication: DIABETES MELLITUS NON-INSULIN-DEPENDENT
     Dosage: 5 MCG; BID; SC
     Route: 058
     Dates: start: 20060301, end: 20060327
  3. METFORMIN [Concomitant]
  4. NEURONTIN [Concomitant]
  5. NASONEX [Concomitant]
  6. EFFEXOR [Concomitant]
  7. LIPITOR [Concomitant]
  8. CLONOPIN [Concomitant]
  9. ABILIFY [Concomitant]
  10. ASPIRIN [Concomitant]
  11. ZANTAC [Concomitant]
  12. SYNTHROID [Concomitant]
  13. DIOVAN [Concomitant]

REACTIONS (1)
  - INJECTION SITE URTICARIA [None]
